FAERS Safety Report 10682976 (Version 2)
Quarter: 2015Q1

REPORT INFORMATION
  Report Type: Spontaneous
  Country: US (occurrence: US)
  Receive Date: 20141230
  Receipt Date: 20150217
  Transmission Date: 20150720
  Serious: Yes (Hospitalization)
  Sender: FDA-Public Use
  Company Number: US-INCYTE CORPORATION-2014IN003983

PATIENT
  Age: 87 Year
  Sex: Female

DRUGS (11)
  1. TRIAMTERENE. [Concomitant]
     Active Substance: TRIAMTERENE
  2. ALIGN [Concomitant]
     Active Substance: BIFIDOBACTERIUM LONGUM SUBSP. INFANTIS
  3. LEVOTHYROXINE [Concomitant]
     Active Substance: LEVOTHYROXINE
  4. CRANBERRY                          /01512301/ [Concomitant]
  5. TOBRAMYCIN. [Concomitant]
     Active Substance: TOBRAMYCIN
  6. BABY ASPIRIN [Concomitant]
     Active Substance: ASPIRIN
  7. BACTRIM [Concomitant]
     Active Substance: SULFAMETHOXAZOLE\TRIMETHOPRIM
  8. CALCIUM GLUCONATE. [Concomitant]
     Active Substance: CALCIUM GLUCONATE
  9. JAKAFI [Suspect]
     Active Substance: RUXOLITINIB
     Indication: MYELOFIBROSIS
     Dosage: 5 MG, BID
     Route: 048
     Dates: start: 201402
  10. MVI [Concomitant]
     Active Substance: VITAMINS
  11. FENOFIBRATE. [Concomitant]
     Active Substance: FENOFIBRATE

REACTIONS (1)
  - Transitional cell cancer of the renal pelvis and ureter [Unknown]

NARRATIVE: CASE EVENT DATE: 201410
